FAERS Safety Report 8092761-8 (Version None)
Quarter: 2012Q1

REPORT INFORMATION
  Report Type: 
  Country: None (occurrence: None)
  Receive Date: 20120128
  Receipt Date: 20110813
  Transmission Date: 20120608
  Serious: No
  Sender: FDA-Public Use
  Company Number: US-ABBOTT-11P-163-0846169-00

PATIENT
  Sex: Female

DRUGS (3)
  1. FLAGYL [Concomitant]
     Indication: CROHN'S DISEASE
  2. HUMIRA [Suspect]
     Indication: CROHN'S DISEASE
     Dates: start: 20110601
  3. IMURAN [Concomitant]
     Indication: CROHN'S DISEASE

REACTIONS (3)
  - UPPER-AIRWAY COUGH SYNDROME [None]
  - COUGH [None]
  - NASAL CONGESTION [None]
